FAERS Safety Report 20323331 (Version 2)
Quarter: 2022Q1

REPORT INFORMATION
  Report Type: Spontaneous
  Country: IN (occurrence: IN)
  Receive Date: 20220111
  Receipt Date: 20220118
  Transmission Date: 20220423
  Serious: Yes (Other)
  Sender: FDA-Public Use
  Company Number: IN-PFIZER INC-202200021195

PATIENT
  Age: 49 Year
  Sex: Male

DRUGS (1)
  1. LORLATINIB [Suspect]
     Active Substance: LORLATINIB
     Dosage: 100 MG, 1X/DAY
     Dates: start: 20210414

REACTIONS (9)
  - Haematochezia [Unknown]
  - Movement disorder [Unknown]
  - Neoplasm progression [Unknown]
  - Blood urine present [Unknown]
  - Dysgraphia [Unknown]
  - General physical health deterioration [Not Recovered/Not Resolved]
  - Mutism [Unknown]
  - Wrong technique in product usage process [Unknown]
  - Off label use [Unknown]
